FAERS Safety Report 5010909-6 (Version None)
Quarter: 2006Q2

REPORT INFORMATION
  Report Type: 
  Country: None (occurrence: None)
  Receive Date: 20060523
  Receipt Date: 20060511
  Transmission Date: 20061013
  Serious: Yes (Other)
  Sender: FDA-Public Use
  Company Number: 225096

PATIENT
  Sex: 0

DRUGS (1)
  1. NUTROPIN [Suspect]

REACTIONS (2)
  - SARCOMA [None]
  - SOFT TISSUE DISORDER [None]
